FAERS Safety Report 9042286 (Version 1)
Quarter: 2013Q1

REPORT INFORMATION
  Report Type: Report from Study
  Country: US (occurrence: US)
  Receive Date: 20130129
  Receipt Date: 20130129
  Transmission Date: 20140127
  Serious: No
  Sender: FDA-Public Use
  Company Number: US-ABBOTT-12P-163-0906496-00

PATIENT
  Sex: Female
  Weight: 96.25 kg

DRUGS (7)
  1. HUMIRA 40 MG/0.8 ML PEN [Suspect]
     Indication: CROHN^S DISEASE
     Dates: start: 201201
  2. AMBIEN [Concomitant]
     Indication: INSOMNIA
  3. CELEXA [Concomitant]
     Indication: AFFECTIVE DISORDER
  4. XANAX [Concomitant]
     Indication: ANXIETY
  5. OMEPRAZOLE [Concomitant]
     Indication: GASTROOESOPHAGEAL REFLUX DISEASE
  6. VITAMIN B [Concomitant]
     Indication: SUPPLEMENTATION THERAPY
  7. IRON [Concomitant]
     Indication: PRODUCT USED FOR UNKNOWN INDICATION

REACTIONS (1)
  - Weight increased [Not Recovered/Not Resolved]
